FAERS Safety Report 15920513 (Version 1)
Quarter: 2019Q1

REPORT INFORMATION
  Report Type: Spontaneous
  Country: US (occurrence: US)
  Receive Date: 20190205
  Receipt Date: 20190205
  Transmission Date: 20190417
  Serious: No
  Sender: FDA-Public Use
  Company Number: US-PFIZER INC-2019051677

PATIENT
  Age: 16 Year
  Sex: Male
  Weight: 66.67 kg

DRUGS (1)
  1. GENOTROPIN [Suspect]
     Active Substance: SOMATROPIN
     Indication: BLOOD GROWTH HORMONE
     Dosage: 4 MG, 1X/DAY

REACTIONS (1)
  - Incorrect dose administered [Not Recovered/Not Resolved]
